FAERS Safety Report 9724534 (Version 1)
Quarter: 2013Q4

REPORT INFORMATION
  Report Type: Spontaneous
  Country: US (occurrence: US)
  Receive Date: 20131202
  Receipt Date: 20131202
  Transmission Date: 20140711
  Serious: No
  Sender: FDA-Public Use
  Company Number: US-AMGEN-USASP2013082890

PATIENT
  Sex: Female

DRUGS (2)
  1. ENBREL [Suspect]
     Indication: RHEUMATOID ARTHRITIS
     Dosage: UNK
     Route: 065
     Dates: end: 201112
  2. HUMIRA [Concomitant]
     Dosage: UNK

REACTIONS (9)
  - Rheumatoid arthritis [Unknown]
  - Arthropathy [Unknown]
  - Bone deformity [Unknown]
  - Joint range of motion decreased [Unknown]
  - Muscular weakness [Unknown]
  - Arthralgia [Unknown]
  - Local swelling [Unknown]
  - Joint swelling [Unknown]
  - Mobility decreased [Unknown]
